FAERS Safety Report 7929579-X (Version None)
Quarter: 2011Q4

REPORT INFORMATION
  Report Type: 
  Country: None (occurrence: None)
  Receive Date: 20111108
  Receipt Date: 20110406
  Transmission Date: 20120403
  Serious: Yes (Other)
  Sender: FDA-Public Use
  Company Number: PHHY2011US29308

PATIENT
  Age: 59 Year
  Sex: Male
  Weight: 109.3 kg

DRUGS (1)
  1. ZOMETA [Suspect]
     Dosage: 4 MG, INTRAVENOUS
     Route: 042
     Dates: start: 20050610, end: 20110203

REACTIONS (1)
  - OSTEONECROSIS OF JAW [None]
